FAERS Safety Report 4299987-X (Version None)
Quarter: 2004Q1

REPORT INFORMATION
  Report Type: 
  Country: None (occurrence: None)
  Receive Date: 20040219
  Receipt Date: 20030227
  Transmission Date: 20041129
  Serious: Yes (Other)
  Sender: FDA-Public Use
  Company Number: C2003-200-121

PATIENT
  Age: 14 Year
  Sex: Male
  Weight: 52 kg

DRUGS (25)
  1. CEFAZOLIN [Suspect]
     Indication: PNEUMONIA
     Route: 042
     Dates: start: 20021212
  2. KEPPRA [Suspect]
     Dosage: SEE IMAGE
     Dates: start: 20021216, end: 20021207
  3. KEPPRA [Suspect]
     Dosage: SEE IMAGE
     Dates: start: 20021208, end: 20021211
  4. TOBRAMYCIN [Suspect]
     Route: 042
     Dates: start: 20021209, end: 20021212
  5. BACTRIM [Suspect]
     Route: 042
     Dates: start: 20021201, end: 20021210
  6. DILANTIN [Suspect]
     Route: 042
  7. CEFPROZIL [Suspect]
     Route: 042
     Dates: start: 20021206, end: 20021209
  8. CEFEPIME [Suspect]
     Route: 042
     Dates: start: 20021209, end: 20021214
  9. CEFOTAXIME [Suspect]
     Route: 042
     Dates: start: 20021209, end: 20021209
  10. GENTAMICIN [Suspect]
     Route: 042
     Dates: start: 20021210, end: 20021212
  11. FOSPHENYTOIN SODIUM [Suspect]
     Route: 042
     Dates: start: 20021208
  12. PHENYTOIN [Suspect]
     Route: 050
     Dates: start: 20021201, end: 20021215
  13. VALPROIC ACID [Concomitant]
  14. PHENOBARBITAL TAB [Concomitant]
  15. LEVETIRACETAM [Concomitant]
  16. PHENOBARBITAL TAB [Concomitant]
  17. PROPRANOLOL [Concomitant]
  18. LORAZEPAM [Concomitant]
  19. FENTANYL [Concomitant]
  20. HALDOL [Concomitant]
  21. HYDROCORTISONE [Concomitant]
  22. MULTIVITAMINS (ERGOCALCIFEROL/ASCORBIC ACID, FOLIC ACID, THIAMINE HYDR [Concomitant]
  23. FOLIC ACID [Concomitant]
  24. OMEPRAZOLE [Concomitant]
  25. LANSOPREZOLE [Concomitant]

REACTIONS (5)
  - DRUG ERUPTION [None]
  - EOSINOPHILIA [None]
  - ERYTHEMA [None]
  - RASH MACULO-PAPULAR [None]
  - SKIN DESQUAMATION [None]
